FAERS Safety Report 5168651-7 (Version None)
Quarter: 2006Q4

REPORT INFORMATION
  Report Type: 
  Country: None (occurrence: None)
  Receive Date: 20061211
  Receipt Date: 20061201
  Transmission Date: 20070319
  Serious: Yes (Hospitalization)
  Sender: FDA-Public Use
  Company Number: US-JNJFOC-20061200785

PATIENT
  Sex: Female
  Weight: 77.11 kg

DRUGS (15)
  1. INFLIXIMAB [Suspect]
     Indication: RHEUMATOID ARTHRITIS
  2. ASPIRIN [Concomitant]
  3. LANOXIN [Concomitant]
  4. ALBUTEROL [Concomitant]
  5. FOLIC ACID [Concomitant]
  6. MOBIC [Concomitant]
  7. EVISTA [Concomitant]
  8. PRILOSEC [Concomitant]
  9. LISINOPRIL [Concomitant]
  10. TRIMEPRAZINE [Concomitant]
  11. REQUIP [Concomitant]
  12. LOVESTATIN [Concomitant]
  13. METHOTREXATE [Concomitant]
  14. HYDROCODONE/ACETAMINOPHEN [Concomitant]
  15. CALCIUM [Concomitant]

REACTIONS (8)
  - CARDIAC FAILURE CONGESTIVE [None]
  - CHILLS [None]
  - CONFUSIONAL STATE [None]
  - DISORIENTATION [None]
  - DIZZINESS [None]
  - HAEMOGLOBIN DECREASED [None]
  - PYREXIA [None]
  - WHITE BLOOD CELL COUNT INCREASED [None]
